FAERS Safety Report 8286823-X (Version None)
Quarter: 2012Q2

REPORT INFORMATION
  Report Type: 
  Country: None (occurrence: None)
  Receive Date: 20120416
  Receipt Date: 20120412
  Transmission Date: 20120825
  Serious: Yes (Life-Threatening)
  Sender: FDA-Public Use
  Company Number: DE-B.I. PHARMACEUTICALS,INC./RIDGEFIELD-2012-DE-00856DE

PATIENT
  Sex: Female
  Weight: 61 kg

DRUGS (10)
  1. ENALAPRIL 5 [Concomitant]
     Indication: HYPERTENSION
  2. EUTHYROX 125 [Concomitant]
     Indication: HYPOTHYROIDISM
     Dosage: 1 ANZ
     Route: 048
  3. TOREM 5 [Concomitant]
     Indication: CARDIAC FAILURE
     Dosage: 1 ANZ
     Route: 048
  4. CALCIUM D3 [Concomitant]
     Indication: OSTEOPOROSIS
     Dosage: 2 ANZ
     Route: 048
  5. ENALAPRIL 5 [Concomitant]
     Indication: CARDIAC FAILURE
     Dosage: 2 ANZ
     Route: 048
  6. PRADAXA [Suspect]
     Indication: ATRIAL FIBRILLATION
     Dosage: 300 MG
     Route: 048
     Dates: start: 20111027, end: 20120226
  7. LEVODOPA 200/50 [Concomitant]
     Indication: PARKINSON'S DISEASE
     Dosage: 3/4-3/4-3/4-1/2
     Route: 048
  8. BETA-ACETYLDIGOXIN [Concomitant]
  9. SIFROL 0,35 [Concomitant]
     Indication: PARKINSON'S DISEASE
     Dosage: 1 ANZ
     Route: 048
  10. METOPROLOL TARTRATE AND HYDROCHLOROTHIAZIDE [Concomitant]
     Indication: ATRIAL FIBRILLATION
     Dosage: 2 ANZ
     Route: 048

REACTIONS (9)
  - OESOPHAGEAL VARICES HAEMORRHAGE [None]
  - HAEMATEMESIS [None]
  - PORTAL HYPERTENSIVE GASTROPATHY [None]
  - UPPER GASTROINTESTINAL HAEMORRHAGE [None]
  - VARICES OESOPHAGEAL [None]
  - MELAENA [None]
  - HEPATIC CIRRHOSIS [None]
  - ANAEMIA [None]
  - AUTOIMMUNE HEPATITIS [None]
